FAERS Safety Report 6143416-8 (Version None)
Quarter: 2009Q2

REPORT INFORMATION
  Report Type: 
  Country: None (occurrence: None)
  Receive Date: 20090403
  Receipt Date: 20090324
  Transmission Date: 20091009
  Serious: Yes (Other)
  Sender: FDA-Public Use
  Company Number: US-ABBOTT-09P-163-0564298-00

PATIENT
  Age: 56 Year
  Sex: Male

DRUGS (6)
  1. DEPAKOTE [Suspect]
     Indication: DRUG USE FOR UNKNOWN INDICATION
  2. SYNTHROID [Suspect]
     Indication: DRUG USE FOR UNKNOWN INDICATION
  3. UROXATRAL [Suspect]
     Indication: BENIGN PROSTATIC HYPERPLASIA
     Route: 048
     Dates: start: 20090301, end: 20090311
  4. UROXATRAL [Suspect]
     Route: 048
     Dates: start: 20090313
  5. TEGRETOL [Suspect]
     Indication: DRUG USE FOR UNKNOWN INDICATION
  6. METOPROLOL [Suspect]
     Indication: DRUG USE FOR UNKNOWN INDICATION

REACTIONS (4)
  - ABNORMAL BEHAVIOUR [None]
  - AGGRESSION [None]
  - DRUG INTERACTION [None]
  - ILLOGICAL THINKING [None]
